FAERS Safety Report 20070613 (Version 5)
Quarter: 2022Q2

REPORT INFORMATION
  Report Type: Report from Study
  Country: FR (occurrence: FR)
  Receive Date: 20211115
  Receipt Date: 20220517
  Transmission Date: 20220720
  Serious: Yes (Hospitalization)
  Sender: FDA-Public Use
  Company Number: FR-TAKEDA-2021TUS070597

PATIENT
  Age: 82 Year
  Sex: Female

DRUGS (2)
  1. IXAZOMIB [Suspect]
     Active Substance: IXAZOMIB
     Indication: Plasma cell myeloma
     Dosage: 4 MILLIGRAM
     Route: 048
     Dates: start: 20210722, end: 20211028
  2. DARATUMUMAB [Suspect]
     Active Substance: DARATUMUMAB
     Indication: Plasma cell myeloma
     Dosage: 944 MILLIGRAM
     Route: 042
     Dates: start: 20210722, end: 20211028

REACTIONS (5)
  - Malaise [Recovered/Resolved]
  - Melaena [Recovered/Resolved]
  - Anaemia [Unknown]
  - General physical health deterioration [Unknown]
  - Malnutrition [Unknown]

NARRATIVE: CASE EVENT DATE: 20211031
